FAERS Safety Report 13508540 (Version 1)
Quarter: 2017Q2

REPORT INFORMATION
  Report Type: Report from Study
  Country: DE (occurrence: DE)
  Receive Date: 20170503
  Receipt Date: 20170503
  Transmission Date: 20170830
  Serious: Yes (Other)
  Sender: FDA-Public Use
  Company Number: DE-SUN PHARMACEUTICAL INDUSTRIES LTD-2017R1-139636

PATIENT
  Age: 15 Year
  Sex: Female

DRUGS (1)
  1. PAMIDRONATE [Suspect]
     Active Substance: PAMIDRONATE DISODIUM
     Indication: OSTEOMYELITIS CHRONIC
     Dosage: 1 MG / KG BODY WEIGHT EVERY 4 WEEKS FOR 6 MONTHS (SIX APPLICATIONS) WITH A MAX DOSE OF 60MG/CYCLE
     Route: 042

REACTIONS (2)
  - Off label use [Unknown]
  - Phlebitis [Unknown]
